FAERS Safety Report 5826864-2 (Version None)
Quarter: 2008Q3

REPORT INFORMATION
  Report Type: 
  Country: None (occurrence: None)
  Receive Date: 20080730
  Receipt Date: 20080725
  Transmission Date: 20090109
  Serious: Yes (Hospitalization)
  Sender: FDA-Public Use
  Company Number: FR-AVENTIS-200812824FR

PATIENT
  Age: 89 Year
  Sex: Female

DRUGS (7)
  1. LASIX [Suspect]
     Indication: CARDIAC FAILURE
     Route: 048
  2. LASIX [Suspect]
     Dosage: DOSE: INCREASED
     Route: 048
     Dates: end: 20080601
  3. DIGITALINE NATIVELLE [Suspect]
     Indication: CARDIAC FAILURE
     Route: 048
     Dates: end: 20080601
  4. BISOPROLOL FUMARATE [Suspect]
     Indication: CARDIAC FAILURE
     Route: 048
  5. KARDEGIC                           /00002703/ [Concomitant]
     Indication: DRUG USE FOR UNKNOWN INDICATION
  6. TRINITRINE [Concomitant]
     Indication: DRUG USE FOR UNKNOWN INDICATION
  7. OGAST [Concomitant]
     Indication: DRUG USE FOR UNKNOWN INDICATION
     Route: 048

REACTIONS (2)
  - DEHYDRATION [None]
  - FALL [None]
